FAERS Safety Report 5414889-0 (Version None)
Quarter: 2007Q3

REPORT INFORMATION
  Report Type: 
  Country: None (occurrence: None)
  Receive Date: 20070813
  Receipt Date: 20070803
  Transmission Date: 20080115
  Serious: Yes (Other)
  Sender: FDA-Public Use
  Company Number: 2006-05-0746

PATIENT
  Age: 12 Year
  Sex: Male

DRUGS (1)
  1. DESLORATADINE [Suspect]
     Indication: HYPERSENSITIVITY
     Dosage: QD; PO
     Route: 048
     Dates: start: 20060505

REACTIONS (1)
  - ASPHYXIA [None]
